FAERS Safety Report 4890636-6 (Version None)
Quarter: 2006Q1

REPORT INFORMATION
  Report Type: 
  Country: None (occurrence: None)
  Receive Date: 20060125
  Receipt Date: 20041223
  Transmission Date: 20060701
  Serious: No
  Sender: FDA-Public Use
  Company Number: US-BRISTOL-MYERS SQUIBB COMPANY-12806253

PATIENT
  Age: 61 Year
  Sex: Female

DRUGS (1)
  1. CARDIOLITE [Suspect]
     Indication: EXERCISE TEST
     Dates: start: 20041223

REACTIONS (3)
  - FLUSHING [None]
  - HEADACHE [None]
  - VOMITING [None]
